FAERS Safety Report 8969436 (Version 1)
Quarter: 2012Q4

REPORT INFORMATION
  Report Type: 
  Country: JP (occurrence: JP)
  Receive Date: 20121218
  Receipt Date: 20121218
  Transmission Date: 20130627
  Serious: Yes (Other)
  Sender: FDA-Public Use
  Company Number: JP-ABBOTT-12P-087-1022343-00

PATIENT
  Age: 46 Year
  Sex: Female

DRUGS (1)
  1. CLARITH [Suspect]
     Indication: PRODUCT USED FOR UNKNOWN INDICATION
     Route: 048
     Dates: start: 201105, end: 201105

REACTIONS (1)
  - Drug-induced liver injury [Unknown]
